FAERS Safety Report 12954517 (Version 1)
Quarter: 2016Q4

REPORT INFORMATION
  Report Type: Report from Study
  Country: DE (occurrence: DE)
  Receive Date: 20161118
  Receipt Date: 20161118
  Transmission Date: 20170207
  Serious: Yes (Hospitalization)
  Sender: FDA-Public Use
  Company Number: DE-ROCHE-1205490

PATIENT
  Sex: Female
  Weight: 86 kg

DRUGS (10)
  1. DEXAHEXAL [Concomitant]
     Indication: VOMITING
     Route: 042
     Dates: start: 20130304, end: 20130429
  2. BEVACIZUMAB [Suspect]
     Active Substance: BEVACIZUMAB
     Route: 042
     Dates: start: 20130730, end: 20140107
  3. PACLITAXEL. [Suspect]
     Active Substance: PACLITAXEL
     Route: 042
  4. ZOFRAN [Concomitant]
     Active Substance: ONDANSETRON HYDROCHLORIDE
     Indication: VOMITING
     Route: 042
     Dates: start: 20130304, end: 20130429
  5. ZANTAC [Concomitant]
     Active Substance: RANITIDINE HYDROCHLORIDE
     Route: 042
     Dates: start: 20130304, end: 20130429
  6. CARBOPLATIN. [Suspect]
     Active Substance: CARBOPLATIN
     Indication: LUNG NEOPLASM MALIGNANT
     Route: 042
     Dates: start: 20130304, end: 20140429
  7. PACLITAXEL. [Suspect]
     Active Substance: PACLITAXEL
     Indication: LUNG NEOPLASM MALIGNANT
     Route: 042
     Dates: start: 20130304, end: 20130429
  8. CARBOPLATIN. [Suspect]
     Active Substance: CARBOPLATIN
     Route: 042
  9. TAVEGIL [Concomitant]
     Active Substance: CLEMASTINE FUMARATE
     Route: 042
     Dates: start: 20130304, end: 20130304
  10. BEVACIZUMAB [Suspect]
     Active Substance: BEVACIZUMAB
     Indication: LUNG NEOPLASM MALIGNANT
     Route: 042
     Dates: start: 20130304, end: 20130429

REACTIONS (2)
  - Pulmonary embolism [Recovering/Resolving]
  - Seizure [Recovered/Resolved]

NARRATIVE: CASE EVENT DATE: 20130313
